FAERS Safety Report 8585126-3 (Version None)
Quarter: 2012Q3

REPORT INFORMATION
  Report Type: 
  Country: None (occurrence: None)
  Receive Date: 20120810
  Receipt Date: 20120801
  Transmission Date: 20120928
  Serious: Yes (Hospitalization, Other)
  Sender: FDA-Public Use
  Company Number: PHEH2012US015137

PATIENT
  Sex: Female

DRUGS (3)
  1. MYFORTIC [Concomitant]
  2. PROGRAF [Concomitant]
  3. EXJADE [Suspect]
     Indication: IRON METABOLISM DISORDER
     Dosage: 2000 MG, EVERY MORNING
     Route: 048
     Dates: start: 20120601

REACTIONS (7)
  - SINUSITIS [None]
  - HYPOAESTHESIA [None]
  - PAIN [None]
  - DIARRHOEA [None]
  - WALKING DISABILITY [None]
  - PARAESTHESIA [None]
  - MALAISE [None]
